FAERS Safety Report 4943773-1 (Version None)
Quarter: 2006Q1

REPORT INFORMATION
  Report Type: 
  Country: None (occurrence: None)
  Receive Date: 20060310
  Receipt Date: 20060301
  Transmission Date: 20060701
  Serious: Yes (Other)
  Sender: FDA-Public Use
  Company Number: 2005166595

PATIENT
  Age: 74 Year
  Sex: Female
  Weight: 50 kg

DRUGS (7)
  1. SULFASALAZINE [Suspect]
     Indication: POLYARTHRITIS
     Dosage: 3 GRAM (500 MG, DAILY), ORAL
     Route: 048
     Dates: start: 19900101, end: 20050801
  2. HYDROCHLOROTHIAZIDE [Concomitant]
  3. VALSARTAN [Concomitant]
  4. FLECAINIDE ACETATE [Concomitant]
  5. ASPIRIN [Concomitant]
  6. OMEPRAZOLE [Concomitant]
  7. BISOPROLOL [Concomitant]

REACTIONS (9)
  - ABDOMINAL PAIN UPPER [None]
  - ARRHYTHMIA [None]
  - ERYTHEMA [None]
  - GASTRIC DISORDER [None]
  - HOT FLUSH [None]
  - HYPERTENSION [None]
  - HYPERTHYROIDISM [None]
  - PRURITUS [None]
  - TOXIC NODULAR GOITRE [None]
